FAERS Safety Report 6287741-9 (Version None)
Quarter: 2009Q3

REPORT INFORMATION
  Report Type: 
  Country: None (occurrence: None)
  Receive Date: 20090727
  Receipt Date: 20090727
  Transmission Date: 20100115
  Serious: No
  Sender: FDA-Public Use
  Company Number: None

PATIENT
  Sex: Female
  Weight: 59.1 kg

DRUGS (1)
  1. ARMOUR THYROID 60 MG FOREST [Suspect]
     Indication: HYPOTHYROIDISM
     Dosage: 60 MG ARMOUR THYROID 1 A DAY BY MOUTH FOR YEARS AND PRESENTLY
     Route: 048

REACTIONS (3)
  - CARPAL TUNNEL SYNDROME [None]
  - DRUG INEFFECTIVE [None]
  - PRODUCT FORMULATION ISSUE [None]
